APPROVED DRUG PRODUCT: ROSUVASTATIN CALCIUM
Active Ingredient: ROSUVASTATIN CALCIUM
Strength: EQ 40MG BASE
Dosage Form/Route: TABLET;ORAL
Application: A201619 | Product #004 | TE Code: AB
Applicant: TORRENT PHARMACEUTICALS LTD
Approved: Oct 31, 2016 | RLD: No | RS: No | Type: RX